FAERS Safety Report 11388846 (Version 1)
Quarter: 2015Q3

REPORT INFORMATION
  Report Type: Spontaneous
  Country: US (occurrence: US)
  Receive Date: 20150811
  Receipt Date: 20150811
  Transmission Date: 20151125
  Serious: Yes (Hospitalization, Other)
  Sender: FDA-Public Use
  Company Number: US-APOTEX-2015AP008019

PATIENT
  Age: 23 Year
  Sex: Female

DRUGS (1)
  1. PAXIL [Suspect]
     Active Substance: PAROXETINE HYDROCHLORIDE
     Indication: PANIC ATTACK
     Route: 065

REACTIONS (5)
  - Cervical incompetence [Unknown]
  - Vaginal haemorrhage [Unknown]
  - Muscle spasms [Unknown]
  - Premature separation of placenta [Unknown]
  - Maternal exposure during pregnancy [Unknown]
